FAERS Safety Report 21242807 (Version 1)
Quarter: 2022Q3

REPORT INFORMATION
  Report Type: Report from Study
  Country: US (occurrence: US)
  Receive Date: 20220823
  Receipt Date: 20220823
  Transmission Date: 20221027
  Serious: Yes (Other)
  Sender: FDA-Public Use
  Company Number: US-ABBVIE-22K-163-4508519-00

PATIENT
  Sex: Female

DRUGS (2)
  1. HUMIRA [Suspect]
     Active Substance: ADALIMUMAB
     Indication: Psoriasis
     Dosage: CITRATE FREE
     Route: 058
  2. HUMIRA [Suspect]
     Active Substance: ADALIMUMAB
     Indication: Colitis ulcerative
     Dosage: CITRATE FREE
     Route: 058
     Dates: start: 2020

REACTIONS (14)
  - Tooth extraction [Unknown]
  - Varicella [Unknown]
  - General physical health deterioration [Unknown]
  - Urticaria [Unknown]
  - Large intestinal ulcer [Not Recovered/Not Resolved]
  - Pruritus [Not Recovered/Not Resolved]
  - Wound [Not Recovered/Not Resolved]
  - Scar [Unknown]
  - Urticaria [Unknown]
  - Rash [Not Recovered/Not Resolved]
  - Oral fungal infection [Unknown]
  - Oral disorder [Unknown]
  - Arthritis [Recovering/Resolving]
  - Pleurisy [Unknown]

NARRATIVE: CASE EVENT DATE: 20220101
